FAERS Safety Report 20923268 (Version 2)
Quarter: 2022Q2

REPORT INFORMATION
  Report Type: Spontaneous
  Country: BR (occurrence: None)
  Receive Date: 20220607
  Receipt Date: 20220614
  Transmission Date: 20220721
  Serious: Yes (Death, Other)
  Sender: FDA-Public Use
  Company Number: BR-ROCHE-3106695

PATIENT
  Sex: Female

DRUGS (2)
  1. BEVACIZUMAB [Suspect]
     Active Substance: BEVACIZUMAB
     Indication: Product used for unknown indication
     Route: 065
  2. OLAPARIB [Suspect]
     Active Substance: OLAPARIB
     Indication: Product used for unknown indication
     Route: 065

REACTIONS (7)
  - Anaemia [Unknown]
  - Myelodysplastic syndrome [Unknown]
  - Intestinal perforation [Fatal]
  - Sepsis [Unknown]
  - Female genital tract fistula [Fatal]
  - Full blood count abnormal [Unknown]
  - Febrile neutropenia [Unknown]
